FAERS Safety Report 9012623 (Version 1)
Quarter: 2013Q1

REPORT INFORMATION
  Report Type: Spontaneous
  Country: GB (occurrence: GB)
  Receive Date: 20130114
  Receipt Date: 20130114
  Transmission Date: 20140127
  Serious: Yes (Other)
  Sender: FDA-Public Use
  Company Number: PHHY2013GB002004

PATIENT
  Age: 59 Year
  Sex: Female
  Weight: 89.6 kg

DRUGS (8)
  1. OMEPRAZOLE [Suspect]
     Dosage: 20 MG, (ON FOR 20 YEARS)
  2. CLENIL MODULITE [Concomitant]
     Dates: start: 20120626
  3. VENTOLIN [Concomitant]
     Dates: start: 20120730, end: 20120827
  4. DOMPERIDONE [Concomitant]
     Dates: start: 20120912
  5. E45 [Concomitant]
     Dates: start: 20120912, end: 20120922
  6. RANITIDINE [Concomitant]
     Dates: start: 20120925
  7. RANITIDINE [Concomitant]
     Dates: start: 20121004
  8. SODIUM ALGINATE [Concomitant]
     Dates: start: 20121004

REACTIONS (5)
  - Lethargy [Recovered/Resolved]
  - Fluid retention [Recovered/Resolved]
  - Oedema peripheral [Recovered/Resolved]
  - Arthralgia [Recovered/Resolved]
  - Myalgia [Recovered/Resolved]
